FAERS Safety Report 9817267 (Version 1)
Quarter: 2014Q1

REPORT INFORMATION
  Report Type: Spontaneous
  Country: IT (occurrence: IT)
  Receive Date: 20140115
  Receipt Date: 20140115
  Transmission Date: 20141002
  Serious: Yes (Hospitalization)
  Sender: FDA-Public Use
  Company Number: IT-PFIZER INC-2014007694

PATIENT
  Age: 73 Year
  Sex: Male

DRUGS (6)
  1. RIFABUTIN [Suspect]
     Indication: TUBERCULOSIS
     Dosage: 300 MG, DAILY
     Route: 048
     Dates: start: 20131218, end: 20131228
  2. RIFAMPICIN [Suspect]
     Indication: TUBERCULOSIS
     Dosage: 450 MG, DAILY
     Route: 048
     Dates: start: 20131127, end: 20131217
  3. PYRAZINAMIDE [Suspect]
     Indication: TUBERCULOSIS
     Dosage: 2000 MG, DAILY
     Route: 048
     Dates: start: 20131227, end: 20131230
  4. LEVOPRAID [Suspect]
     Dosage: 10 MG, DAILY
     Route: 048
     Dates: start: 20131218, end: 20131230
  5. ETAPIAM [Suspect]
     Indication: TUBERCULOSIS
     Dosage: 800 MG, DAILY
     Route: 048
     Dates: start: 20131227, end: 20131230
  6. NICOZID [Suspect]
     Indication: TUBERCULOSIS
     Dosage: 200 MG, DAILY
     Route: 048
     Dates: start: 20131227, end: 20131230

REACTIONS (1)
  - Neutropenia [Unknown]
